FAERS Safety Report 10475254 (Version 1)
Quarter: 2014Q3

REPORT INFORMATION
  Report Type: Spontaneous
  Country: US (occurrence: None)
  Receive Date: 20140924
  Receipt Date: 20140924
  Transmission Date: 20150326
  Serious: Yes (Hospitalization)
  Sender: FDA-Public Use
  Company Number: None

PATIENT
  Age: 38 Year
  Sex: Female
  Weight: 105 kg

DRUGS (5)
  1. ISOVUE [Concomitant]
     Active Substance: IOPAMIDOL
  2. VANCOMYCIN [Suspect]
     Active Substance: VANCOMYCIN
     Indication: DRUG THERAPY
     Route: 042
     Dates: start: 20140908, end: 20140909
  3. PIPERACILLIN [Concomitant]
     Active Substance: PIPERACILLIN
  4. VANCOMYCIN [Suspect]
     Active Substance: VANCOMYCIN
     Indication: SUBCUTANEOUS ABSCESS
     Route: 042
     Dates: start: 20140908, end: 20140909
  5. KETOROLAC [Concomitant]
     Active Substance: KETOROLAC\KETOROLAC TROMETHAMINE

REACTIONS (1)
  - Blood creatinine increased [None]

NARRATIVE: CASE EVENT DATE: 20140912
